FAERS Safety Report 10223693 (Version 3)
Quarter: 2014Q3

REPORT INFORMATION
  Report Type: Spontaneous
  Country: FR (occurrence: FR)
  Receive Date: 20140609
  Receipt Date: 20140701
  Transmission Date: 20150326
  Serious: Yes (Life-Threatening, Hospitalization)
  Sender: FDA-Public Use
  Company Number: FR-ROCHE-1414092

PATIENT
  Age: 13 Year
  Sex: Male

DRUGS (7)
  1. AERIUS [Concomitant]
     Active Substance: DESLORATADINE
     Route: 065
     Dates: end: 20140524
  2. XOLAIR [Suspect]
     Active Substance: OMALIZUMAB
     Indication: BLOOD IMMUNOGLOBULIN E INCREASED
  3. XOLAIR [Suspect]
     Active Substance: OMALIZUMAB
     Indication: ASTHMA
     Dosage: FIRST INJECTION
     Route: 058
     Dates: start: 20140526, end: 20140526
  4. SERETIDE [Concomitant]
     Active Substance: FLUTICASONE FUROATE\SALMETEROL XINAFOATE
     Route: 065
     Dates: end: 20140504
  5. SINGULAIR [Concomitant]
     Active Substance: MONTELUKAST SODIUM
  6. VENTOLINE [Concomitant]
     Active Substance: ALBUTEROL
     Route: 065
     Dates: end: 20140524
  7. VENTOLINE [Concomitant]
     Active Substance: ALBUTEROL
     Route: 065
     Dates: start: 20140526, end: 20140526

REACTIONS (3)
  - Asthma [Unknown]
  - Anaphylactoid shock [Recovered/Resolved]
  - Respiratory arrest [Recovered/Resolved]

NARRATIVE: CASE EVENT DATE: 20140526
